FAERS Safety Report 6174383-9 (Version None)
Quarter: 2009Q2

REPORT INFORMATION
  Report Type: 
  Country: None (occurrence: None)
  Receive Date: 20090430
  Receipt Date: 20090421
  Transmission Date: 20091009
  Serious: Yes (Life-Threatening)
  Sender: FDA-Public Use
  Company Number: JP-ABBOTT-09P-087-0570250-00

PATIENT
  Age: 75 Year
  Sex: Male

DRUGS (2)
  1. LEUPLIN SR FOR INJECTION 11.25 MG [Suspect]
     Indication: PROSTATE CANCER STAGE III
     Route: 058
     Dates: start: 20060418, end: 20070619
  2. LEUPLIN SR FOR INJECTION 11.25 MG [Suspect]
     Dates: start: 20060322

REACTIONS (3)
  - HYPOAESTHESIA [None]
  - MUSCULOSKELETAL STIFFNESS [None]
  - RECTAL CANCER [None]
